FAERS Safety Report 12140520 (Version 1)
Quarter: 2016Q1

REPORT INFORMATION
  Report Type: Spontaneous
  Country: US (occurrence: None)
  Receive Date: 20160302
  Receipt Date: 20160302
  Transmission Date: 20160526
  Serious: Yes (Other)
  Sender: FDA-Public Use
  Company Number: None

PATIENT
  Age: 47 Year
  Sex: Male
  Weight: 142 kg

DRUGS (1)
  1. IOHEXOL [Suspect]
     Active Substance: IOHEXOL
     Indication: ANGIOGRAM
     Route: 042
     Dates: start: 20160208, end: 20160208

REACTIONS (3)
  - Lacrimation increased [None]
  - Eye swelling [None]
  - Ocular hyperaemia [None]

NARRATIVE: CASE EVENT DATE: 20160208
